FAERS Safety Report 6712679-X (Version None)
Quarter: 2010Q2

REPORT INFORMATION
  Report Type: 
  Country: None (occurrence: None)
  Receive Date: 20100505
  Receipt Date: 20100505
  Transmission Date: 20101027
  Serious: No
  Sender: FDA-Public Use
  Company Number: None

PATIENT
  Age: 45 Year
  Sex: Female
  Weight: 99.7913 kg

DRUGS (1)
  1. HYALGAN - OBTAINED A COPY OF RECORDS BELOW INFO. NOT IN NOTE [Suspect]
     Indication: OSTEOARTHRITIS
     Dosage: WEEKLY FOR 5WKS ENDED 1/09
     Dates: start: 20081201, end: 20090101

REACTIONS (5)
  - ARTHRALGIA [None]
  - BONE DISORDER [None]
  - CHONDROPATHY [None]
  - JOINT SWELLING [None]
  - NUCLEAR MAGNETIC RESONANCE IMAGING ABNORMAL [None]
